FAERS Safety Report 9692856 (Version 1)
Quarter: 2013Q4

REPORT INFORMATION
  Report Type: Spontaneous
  Country: US (occurrence: US)
  Receive Date: 20131118
  Receipt Date: 20131118
  Transmission Date: 20140711
  Serious: Yes (Other)
  Sender: FDA-Public Use
  Company Number: US-CELGENEUS-163-21880-13112066

PATIENT
  Sex: Male

DRUGS (2)
  1. REVLIMID [Suspect]
     Indication: PLASMA CELL MYELOMA
     Dosage: 15 MILLIGRAM
     Route: 048
     Dates: start: 201309
  2. REVLIMID [Suspect]
     Dosage: 25 MILLIGRAM
     Route: 048
     Dates: start: 201310

REACTIONS (8)
  - Suicidal ideation [Unknown]
  - Pyrexia [Unknown]
  - Chills [Unknown]
  - Somnolence [Unknown]
  - Depression [Unknown]
  - Blood glucose decreased [Unknown]
  - Sedation [Unknown]
  - Hyperhidrosis [Unknown]
